FAERS Safety Report 24464140 (Version 1)
Quarter: 2024Q4

REPORT INFORMATION
  Report Type: Report from Study
  Country: US (occurrence: US)
  Receive Date: 20241018
  Receipt Date: 20241018
  Transmission Date: 20250115
  Serious: Yes (Death)
  Sender: RECORDATI
  Company Number: US-RECORDATI RARE DISEASES-2024008068

PATIENT

DRUGS (4)
  1. CYSTADANE [Suspect]
     Active Substance: BETAINE
     Indication: Product used for unknown indication
     Dosage: 30 MILLILITER, TID (POWDER)
     Route: 048
     Dates: start: 20210801
  2. CYSTADANE [Suspect]
     Active Substance: BETAINE
     Dosage: 2 GRAM, TID (POWDER)
     Route: 048
     Dates: start: 20240416, end: 20241010
  3. LEUCOVORIN CALCIUM [Concomitant]
     Active Substance: LEUCOVORIN CALCIUM
     Indication: Product used for unknown indication
     Dosage: 10 MG, Q12H, (10 M) TABLET
     Route: 048
     Dates: start: 20210801
  4. HYDROXOCOBALAMIN ACETATE [Concomitant]
     Active Substance: HYDROXOCOBALAMIN ACETATE
     Indication: Product used for unknown indication
     Dosage: 1000 (UNSPECIFIED UNITS), EVERY DAY
     Route: 030
     Dates: start: 20210901

REACTIONS (2)
  - Death [Fatal]
  - Off label use [Recovered/Resolved]

NARRATIVE: CASE EVENT DATE: 20210801
